FAERS Safety Report 17897473 (Version 3)
Quarter: 2020Q3

REPORT INFORMATION
  Report Type: Report from Study
  Country: None (occurrence: CA)
  Receive Date: 20200616
  Receipt Date: 20200829
  Transmission Date: 20201103
  Serious: Yes (Hospitalization)
  Sender: FDA-Public Use
  Company Number: CA-ABBVIE-20K-028-3443229-00

PATIENT
  Sex: Male
  Weight: 64.01 kg

DRUGS (1)
  1. MAVIRET [Suspect]
     Active Substance: GLECAPREVIR\PIBRENTASVIR
     Indication: CHRONIC HEPATITIS C
     Route: 048
     Dates: start: 20191129, end: 20200218

REACTIONS (2)
  - Hepatic cancer [Unknown]
  - Hepatic infection [Unknown]

NARRATIVE: CASE EVENT DATE: 2020
